FAERS Safety Report 8025409-9 (Version None)
Quarter: 2012Q1

REPORT INFORMATION
  Report Type: 
  Country: None (occurrence: None)
  Receive Date: 20120105
  Receipt Date: 20111230
  Transmission Date: 20120608
  Serious: Yes (Hospitalization, Other)
  Sender: FDA-Public Use
  Company Number: US-PFIZER INC-2011288542

PATIENT
  Sex: Female
  Weight: 72.109 kg

DRUGS (15)
  1. RITALIN [Suspect]
     Indication: DEPRESSION
     Dosage: 5 MG, 2X/DAY
     Dates: start: 20111111, end: 20110101
  2. RITALIN [Suspect]
     Indication: ANXIETY
  3. PAXIL [Suspect]
     Indication: DEPRESSION
  4. ALPRAZOLAM [Concomitant]
     Indication: ANXIETY
     Dosage: 0.5 MG, AS NEEDED
  5. PRISTIQ [Suspect]
     Indication: DEPRESSION
     Dosage: 100 MG, DAILY
     Route: 048
     Dates: start: 20110901
  6. PRISTIQ [Suspect]
     Indication: ANXIETY
  7. LEVOTHYROXINE SODIUM [Suspect]
     Indication: THYROID DISORDER
     Dosage: 88 UG, DAILY
  8. PAXIL [Suspect]
     Indication: ANXIETY
     Dosage: UNK
     Route: 048
     Dates: start: 19940101
  9. FEXOFENADINE [Concomitant]
     Indication: HYPERSENSITIVITY
     Dosage: 180 MG, DAILY
  10. MIRTAZAPINE [Suspect]
     Indication: ANXIETY
  11. CYMBALTA [Suspect]
     Dosage: UNK
  12. SIMVASTATIN [Concomitant]
     Indication: BLOOD CHOLESTEROL ABNORMAL
     Dosage: 40 MG, DAILY
  13. ACETYLSALICYLIC ACID [Concomitant]
     Indication: ANTICOAGULANT THERAPY
     Dosage: 81 MG, DAILY
  14. PROZAC [Suspect]
     Dosage: UNK
     Route: 048
  15. MIRTAZAPINE [Suspect]
     Indication: DEPRESSION
     Dosage: 7.5 MG, DAILY

REACTIONS (11)
  - ABNORMAL DREAMS [None]
  - CHEST DISCOMFORT [None]
  - HEART RATE INCREASED [None]
  - DEPRESSED MOOD [None]
  - NIGHTMARE [None]
  - BLOOD PRESSURE INCREASED [None]
  - CRYING [None]
  - EMOTIONAL DISORDER [None]
  - LOSS OF CONSCIOUSNESS [None]
  - WITHDRAWAL SYNDROME [None]
  - DRUG INEFFECTIVE [None]
